FAERS Safety Report 9521899 (Version 2)
Quarter: 2013Q3

REPORT INFORMATION
  Report Type: Spontaneous
  Country: BR (occurrence: BR)
  Receive Date: 20130913
  Receipt Date: 20130913
  Transmission Date: 20140515
  Serious: Yes (Hospitalization)
  Sender: FDA-Public Use
  Company Number: BR-009507513-1304BRA003431

PATIENT
  Age: 65 Year
  Sex: Female
  Weight: 54 kg

DRUGS (11)
  1. PEG-INTRON [Suspect]
     Indication: HEPATITIS C
     Dosage: 80 MICROGRAM, QW
     Route: 058
     Dates: start: 20130305, end: 201306
  2. PEG-INTRON [Suspect]
     Dosage: UNK
     Route: 058
  3. PEG-INTRON [Suspect]
     Dosage: UNK
     Route: 058
     Dates: start: 2010
  4. TELAPREVIR [Concomitant]
     Indication: HEPATITIS C
     Dosage: 2 TABLETS, BID
     Dates: start: 20130301, end: 201306
  5. RIBAVIRIN [Concomitant]
     Indication: HEPATITIS C
     Dosage: 750 MG, QAM
     Dates: start: 20130301, end: 2013
  6. RIBAVIRIN [Concomitant]
     Dosage: 500 MG, QAM
     Dates: start: 2013, end: 2013
  7. RIBAVIRIN [Concomitant]
     Dosage: 250 MG, QAM
     Dates: start: 2013, end: 201306
  8. RIBAVIRIN [Concomitant]
     Dosage: 250 MG, QPM
     Dates: start: 20130301, end: 201306
  9. RIBAVIRIN [Concomitant]
     Dosage: 250 MG, UNK
  10. RIBAVIRIN [Concomitant]
     Dosage: 250 MG, UNK
     Dates: start: 2010
  11. ENDOFOLIN [Concomitant]
     Indication: THALASSAEMIA
     Dosage: 5 MG, QD
     Dates: start: 20130405

REACTIONS (17)
  - Thrombosis [Recovering/Resolving]
  - Dermatitis allergic [Unknown]
  - Transfusion [Recovered/Resolved]
  - Post-traumatic stress disorder [Not Recovered/Not Resolved]
  - Sleep disorder [Unknown]
  - Anaemia [Recovering/Resolving]
  - Syncope [Recovered/Resolved]
  - Vomiting [Recovered/Resolved]
  - Alopecia [Recovering/Resolving]
  - Drug ineffective [Not Recovered/Not Resolved]
  - Decreased appetite [Recovered/Resolved]
  - Decreased appetite [Recovered/Resolved]
  - Depression [Recovered/Resolved]
  - Asthenia [Recovering/Resolving]
  - Asthenia [Recovered/Resolved]
  - Nausea [Recovered/Resolved]
  - Pyrexia [Not Recovered/Not Resolved]
